FAERS Safety Report 19779482 (Version 1)
Quarter: 2021Q3

REPORT INFORMATION
  Report Type: Spontaneous
  Country: JP (occurrence: JP)
  Receive Date: 20210902
  Receipt Date: 20210902
  Transmission Date: 20211014
  Serious: Yes (Other)
  Sender: FDA-Public Use
  Company Number: JP-PFIZER INC-202101093441

PATIENT
  Age: 9 Decade
  Sex: Female

DRUGS (3)
  1. LEVOFLOXACIN. [Suspect]
     Active Substance: LEVOFLOXACIN
     Indication: URINARY TRACT INFECTION
     Dosage: UNK
     Route: 048
  2. CHOREITO [ALISMA ORIENTALE TUBER;GELATIN;POLYPORUS UMBELLATUS SCLEROTI [Concomitant]
     Indication: URINARY TRACT INFECTION
     Dosage: UNK
     Route: 048
  3. CELECOXIB. [Suspect]
     Active Substance: CELECOXIB
     Dosage: UNK

REACTIONS (2)
  - Seizure [Recovering/Resolving]
  - Hypoglycaemia [Recovering/Resolving]
